FAERS Safety Report 9824863 (Version 1)
Quarter: 2014Q1

REPORT INFORMATION
  Report Type: Spontaneous
  Country: US (occurrence: US)
  Receive Date: 20140117
  Receipt Date: 20140117
  Transmission Date: 20141002
  Serious: No
  Sender: FDA-Public Use
  Company Number: US-BIOGENIDEC-2014BI001575

PATIENT
  Age: 33 Year
  Sex: Female

DRUGS (1)
  1. AVONEX [Suspect]
     Indication: MULTIPLE SCLEROSIS
     Route: 030
     Dates: start: 20130201, end: 20130703

REACTIONS (13)
  - Carpal tunnel syndrome [Not Recovered/Not Resolved]
  - General symptom [Recovered/Resolved]
  - General physical health deterioration [Not Recovered/Not Resolved]
  - Optic neuritis [Unknown]
  - Neuropathy peripheral [Unknown]
  - Pollakiuria [Not Recovered/Not Resolved]
  - Urinary tract infection [Unknown]
  - Memory impairment [Not Recovered/Not Resolved]
  - Visual acuity reduced [Not Recovered/Not Resolved]
  - Influenza like illness [Recovered/Resolved]
  - Malaise [Recovered/Resolved]
  - Depressed mood [Unknown]
  - Feeling abnormal [Unknown]
